FAERS Safety Report 13143900 (Version 1)
Quarter: 2017Q1

REPORT INFORMATION
  Report Type: Spontaneous
  Country: US (occurrence: US)
  Receive Date: 20170124
  Receipt Date: 20170124
  Transmission Date: 20170428
  Serious: Yes (Hospitalization, Other)
  Sender: FDA-Public Use
  Company Number: US-JNJFOC-20170119714

PATIENT
  Age: 57 Year
  Sex: Male

DRUGS (5)
  1. REMICADE [Suspect]
     Active Substance: INFLIXIMAB
     Indication: PSORIASIS
     Route: 042
     Dates: start: 2012
  2. NOVOLOG [Concomitant]
     Active Substance: INSULIN ASPART
     Indication: DIABETES MELLITUS
     Route: 065
  3. FUROSEMIDE. [Concomitant]
     Active Substance: FUROSEMIDE
     Route: 065
  4. REMICADE [Suspect]
     Active Substance: INFLIXIMAB
     Indication: SARCOIDOSIS
     Route: 042
     Dates: start: 2012
  5. COLCHICINE. [Concomitant]
     Active Substance: COLCHICINE
     Route: 065

REACTIONS (7)
  - Cellulitis [Recovered/Resolved]
  - Basal cell carcinoma [Recovered/Resolved]
  - Staphylococcal infection [Recovered/Resolved]
  - Streptococcal infection [Recovered/Resolved]
  - Squamous cell carcinoma [Not Recovered/Not Resolved]
  - Drug dose omission [Unknown]
  - Pyrexia [Recovered/Resolved]

NARRATIVE: CASE EVENT DATE: 2015
